FAERS Safety Report 4466653-7 (Version None)
Quarter: 2004Q4

REPORT INFORMATION
  Report Type: 
  Country: None (occurrence: None)
  Receive Date: 20041001
  Receipt Date: 20041001
  Transmission Date: 20050328
  Serious: Yes (Life-Threatening, Hospitalization)
  Sender: FDA-Public Use
  Company Number: None

PATIENT
  Age: 47 Year
  Sex: Female
  Weight: 58.9676 kg

DRUGS (1)
  1. VIOXX [Suspect]
     Indication: ANAPHYLACTIC SHOCK
     Dosage: BID PO
     Route: 048

REACTIONS (3)
  - ANAPHYLACTIC SHOCK [None]
  - FEAR [None]
  - RESPIRATORY ARREST [None]
